FAERS Safety Report 20641980 (Version 2)
Quarter: 2022Q2

REPORT INFORMATION
  Report Type: Spontaneous
  Country: US (occurrence: None)
  Receive Date: 20220328
  Receipt Date: 20220401
  Transmission Date: 20220721
  Serious: Yes (Hospitalization, Other)
  Sender: FDA-Public Use
  Company Number: US-Hikma Pharmaceuticals USA Inc.-US-H14001-22-00867

PATIENT
  Age: 33 Year
  Sex: Female

DRUGS (3)
  1. PROGESTERONE [Suspect]
     Active Substance: PROGESTERONE
     Indication: Pregnancy
     Route: 030
     Dates: start: 202101, end: 202105
  2. PROGESTERONE [Suspect]
     Active Substance: PROGESTERONE
     Route: 030
     Dates: start: 202103, end: 202105
  3. BUSPIRONE [Concomitant]
     Active Substance: BUSPIRONE HYDROCHLORIDE
     Indication: Anxiety
     Route: 048

REACTIONS (4)
  - Injection site abscess [Recovered/Resolved]
  - Actinomycotic skin infection [Unknown]
  - Mycobacterium fortuitum infection [Unknown]
  - Maternal exposure during pregnancy [Unknown]

NARRATIVE: CASE EVENT DATE: 20210601
